FAERS Safety Report 7674810-1 (Version None)
Quarter: 2011Q3

REPORT INFORMATION
  Report Type: 
  Country: None (occurrence: None)
  Receive Date: 20110810
  Receipt Date: 20110802
  Transmission Date: 20111222
  Serious: Yes (Other)
  Sender: FDA-Public Use
  Company Number: US-ROCHE-794776

PATIENT
  Sex: Female

DRUGS (3)
  1. GEODON [Suspect]
     Route: 065
  2. NEURONTIN [Suspect]
     Route: 065
  3. KLONOPIN [Suspect]
     Route: 065

REACTIONS (1)
  - TARDIVE DYSKINESIA [None]
